FAERS Safety Report 9358581 (Version 1)
Quarter: 2013Q2

REPORT INFORMATION
  Report Type: Spontaneous
  Country: US (occurrence: US)
  Receive Date: 20130620
  Receipt Date: 20130620
  Transmission Date: 20140414
  Serious: Yes (Hospitalization, Disabling)
  Sender: FDA-Public Use
  Company Number: US-CELGENEUS-163-POMAL-13054029

PATIENT
  Age: 74 Year
  Sex: Male
  Weight: 72.19 kg

DRUGS (30)
  1. POMALYST [Suspect]
     Indication: PLASMA CELL MYELOMA
     Dosage: 4 MILLIGRAM
     Route: 048
     Dates: start: 20130227, end: 20130416
  2. POMALYST [Suspect]
     Dosage: 2 MILLIGRAM
     Route: 048
     Dates: start: 201304
  3. POMALYST [Suspect]
     Dosage: 2 MILLIGRAM
     Route: 048
     Dates: start: 20130610
  4. DEXAMETHASONE [Suspect]
     Indication: PLASMA CELL MYELOMA
     Dosage: 40 MILLIGRAM
     Route: 048
     Dates: start: 20130227
  5. PROCRIT [Concomitant]
     Indication: PRODUCT USED FOR UNKNOWN INDICATION
     Route: 065
     Dates: start: 20130423
  6. PROCRIT [Concomitant]
     Route: 065
     Dates: start: 20130528
  7. NEUPOGEN [Concomitant]
     Indication: PRODUCT USED FOR UNKNOWN INDICATION
     Dosage: 480 MICROGRAM
     Route: 058
     Dates: start: 20121005
  8. ALPHA LIPOIC ACID [Concomitant]
     Indication: PRODUCT USED FOR UNKNOWN INDICATION
     Dosage: 600 MILLIGRAM
     Route: 048
     Dates: start: 20130225
  9. AMLODIPINE [Concomitant]
     Indication: PRODUCT USED FOR UNKNOWN INDICATION
     Route: 065
     Dates: start: 20121005
  10. CIPRO [Concomitant]
     Indication: PRODUCT USED FOR UNKNOWN INDICATION
     Dosage: 1000 MILLIGRAM
     Route: 048
     Dates: start: 20130411
  11. CYMBALTA [Concomitant]
     Indication: PRODUCT USED FOR UNKNOWN INDICATION
     Dosage: 30 MILLIGRAM
     Route: 048
     Dates: start: 20130305
  12. DURAGESIC [Concomitant]
     Indication: PRODUCT USED FOR UNKNOWN INDICATION
     Dosage: 25 MICROGRAM
     Route: 062
     Dates: start: 20121106
  13. DURAGESIC [Concomitant]
     Dosage: 25 MICROGRAM
     Route: 062
     Dates: start: 20121224
  14. DURAGESIC [Concomitant]
     Dosage: 25 MICROGRAM
     Route: 062
     Dates: start: 20130121
  15. DURAGESIC [Concomitant]
     Dosage: 25 MICROGRAM
     Route: 062
     Dates: start: 20130430
  16. ERGOCALCIFEROL [Concomitant]
     Indication: PRODUCT USED FOR UNKNOWN INDICATION
     Dosage: 50,000 UNIT
     Route: 048
     Dates: start: 20130528
  17. ERGOCALCIFEROL [Concomitant]
     Dosage: 50,000 UNIT
     Route: 065
     Dates: start: 20130114
  18. LISINOPRIL [Concomitant]
     Indication: PRODUCT USED FOR UNKNOWN INDICATION
     Route: 065
     Dates: start: 20121005
  19. MEDROL [Concomitant]
     Indication: PRODUCT USED FOR UNKNOWN INDICATION
     Dosage: 32 MILLIGRAM
     Route: 048
     Dates: start: 20130410
  20. MEDROL [Concomitant]
     Dosage: 8 MILLIGRAM
     Route: 048
     Dates: start: 20130410
  21. MEGACE [Concomitant]
     Indication: PRODUCT USED FOR UNKNOWN INDICATION
     Dosage: 625MG/5ML
     Route: 048
     Dates: start: 20130326
  22. MEGACE [Concomitant]
     Dosage: 400MG/10ML
     Route: 048
     Dates: start: 20130326
  23. TEMAZEPAM [Concomitant]
     Indication: PRODUCT USED FOR UNKNOWN INDICATION
     Route: 048
     Dates: start: 20130528
  24. TRAMADOL [Concomitant]
     Indication: PRODUCT USED FOR UNKNOWN INDICATION
     Route: 048
     Dates: start: 20121005
  25. TRAMADOL [Concomitant]
     Route: 048
     Dates: start: 20121226
  26. TRAMADOL [Concomitant]
     Route: 048
     Dates: start: 20130121
  27. TRAMADOL [Concomitant]
     Route: 048
     Dates: start: 20130225
  28. TRAMADOL [Concomitant]
     Route: 048
     Dates: start: 20130411
  29. TYLENOL [Concomitant]
     Indication: PAIN
     Dosage: 325 MILLIGRAM
     Route: 065
     Dates: start: 20121221
  30. ZOMETA [Concomitant]
     Indication: PRODUCT USED FOR UNKNOWN INDICATION
     Route: 065
     Dates: start: 20130514

REACTIONS (2)
  - Pancytopenia [Recovering/Resolving]
  - Escherichia bacteraemia [Recovered/Resolved]
